FAERS Safety Report 13347263 (Version 1)
Quarter: 2017Q1

REPORT INFORMATION
  Report Type: Report from Study
  Country: DE (occurrence: DE)
  Receive Date: 20170317
  Receipt Date: 20170317
  Transmission Date: 20170428
  Serious: Yes (Death)
  Sender: FDA-Public Use
  Company Number: DE-PFIZER INC-2017107921

PATIENT
  Age: 83 Year
  Sex: Female

DRUGS (9)
  1. PANTOPRAZOL [Concomitant]
     Active Substance: PANTOPRAZOLE SODIUM
     Dosage: 40 MG, 2X/DAY (1-0-1)
  2. XIFAXAN [Concomitant]
     Active Substance: RIFAXIMIN
     Dosage: 550 MG, 2X/DAY (1-0-1)
     Route: 048
  3. BIFITERAL [Concomitant]
     Active Substance: LACTULOSE
     Dosage: 10 ML, 3X/DAY (1-1-1)
  4. LASIX [Concomitant]
     Active Substance: FUROSEMIDE
     Dosage: 40 MG, 1X/DAY (1-0-0)
  5. METHOTREXATE SODIUM. [Suspect]
     Active Substance: METHOTREXATE SODIUM
     Indication: PSORIASIS
     Dosage: 15 MG
     Route: 058
     Dates: start: 20121105, end: 201607
  6. HEPA MERZ [Concomitant]
     Dosage: UNK, 2X/DAY (2-0-2)
  7. LEVOFLOXACIN. [Concomitant]
     Active Substance: LEVOFLOXACIN
     Dosage: 250 MG, 1X/DAY (1-0-0)
     Route: 048
  8. VALORON [Concomitant]
     Active Substance: TILIDINE HYDROCHLORIDE
     Dosage: 50/4 MG, 2X/DAY
  9. KALINOR BRAUSE [Concomitant]
     Dosage: UNK, 1X/DAY (1-0-0)

REACTIONS (1)
  - Death [Fatal]

NARRATIVE: CASE EVENT DATE: 20161119
